FAERS Safety Report 17289744 (Version 1)
Quarter: 2020Q1

REPORT INFORMATION
  Report Type: Report from Study
  Country: US (occurrence: US)
  Receive Date: 20200120
  Receipt Date: 20200120
  Transmission Date: 20200409
  Serious: Yes (Hospitalization)
  Sender: FDA-Public Use
  Company Number: US-AMGEN-USACT2019172061

PATIENT
  Age: 69 Year
  Sex: Female
  Weight: 58.1 kg

DRUGS (40)
  1. CATAPRES [Concomitant]
     Active Substance: CLONIDINE HYDROCHLORIDE
     Dosage: 0.1 MILLIGRAM
     Dates: start: 20180711, end: 20191016
  2. MURO 128 [Concomitant]
     Active Substance: SODIUM CHLORIDE
     Dosage: 2 GTT DROPS
     Dates: start: 20190603, end: 20190814
  3. GLIPIZIDE. [Concomitant]
     Active Substance: GLIPIZIDE
     Dosage: 10 MILLIGRAM, BID
     Dates: start: 20160823
  4. METHOCARBAMOL. [Concomitant]
     Active Substance: METHOCARBAMOL
     Dosage: 750 MILLIGRAM
     Dates: start: 20190301, end: 20190716
  5. MONTELUKAST [Concomitant]
     Active Substance: MONTELUKAST SODIUM
     Dosage: 10 MILLIGRAM
     Route: 048
     Dates: start: 20180228
  6. MEGACE [Concomitant]
     Active Substance: MEGESTROL ACETATE
     Dosage: 400 MILLIGRAM/5-10 MILLILITER OR 200 MILLIGRAM (TWICE DAILY)
  7. CARDIZEM [Concomitant]
     Active Substance: DILTIAZEM HYDROCHLORIDE
     Dosage: 180 MILLIGRAM
     Dates: start: 20180411, end: 20191016
  8. ZOMETA [Concomitant]
     Active Substance: ZOLEDRONIC ACID
     Dosage: 4 MILLIGRAM
     Route: 042
     Dates: start: 20180227
  9. POTASSIUM CHLORIDE. [Concomitant]
     Active Substance: POTASSIUM CHLORIDE
     Dosage: 10-20 MILLIEQUIVALENT, QD
     Route: 042
     Dates: start: 20180227
  10. VITAMIN B12 [Concomitant]
     Active Substance: CYANOCOBALAMIN
     Dosage: 1000 MICROGRAM, QD
  11. LASIX [Concomitant]
     Active Substance: FUROSEMIDE
     Dosage: 26- 40 MILLIGRAM
     Dates: start: 20190826
  12. DEXAMETHASONE. [Concomitant]
     Active Substance: DEXAMETHASONE
     Indication: PLASMA CELL MYELOMA
     Dosage: 10-20 MILLIGRAM
     Dates: start: 20180228
  13. OXYCODONE [Concomitant]
     Active Substance: OXYCODONE
     Indication: PAIN
     Dosage: 5 MILLIGRAM, Q6H
     Dates: start: 20161214
  14. METOCLOPRAMIDE. [Concomitant]
     Active Substance: METOCLOPRAMIDE
     Dosage: 10 MILLIGRAM
     Dates: start: 20190403, end: 20190814
  15. DIPHENHYDRAMINE. [Concomitant]
     Active Substance: DIPHENHYDRAMINE
     Dosage: 50 MILLIGRAM
     Route: 042
     Dates: start: 20190619
  16. ACYCLOVIR [ACICLOVIR] [Concomitant]
     Active Substance: ACYCLOVIR
     Dosage: 800 MILLIGRAM
     Dates: start: 20180223
  17. ALLOPURINOL. [Concomitant]
     Active Substance: ALLOPURINOL
     Dosage: 300 MILLIGRAM
     Dates: start: 20180223
  18. XARELTO [Concomitant]
     Active Substance: RIVAROXABAN
     Dosage: 10 MILLIGRAM, QD
     Dates: start: 20180326
  19. LANTUS [Concomitant]
     Active Substance: INSULIN GLARGINE
     Dosage: 20 UNIT, QHS
     Dates: start: 20180808
  20. HUMULIN R [Concomitant]
     Active Substance: INSULIN HUMAN
     Dosage: 10 UNK
     Dates: start: 20150903
  21. ASPIRIN [ACETYLSALICYLIC ACID] [Concomitant]
     Active Substance: ASPIRIN
     Dosage: 81 MILLIGRAM, QD
     Dates: start: 20160906
  22. KAYEXALATE [Concomitant]
     Active Substance: SODIUM POLYSTYRENE SULFONATE
     Dosage: UNK
  23. CARFILZOMIB [Suspect]
     Active Substance: CARFILZOMIB
     Indication: PLASMA CELL MYELOMA
     Dosage: 51 MILLIGRAM, PER CHEMO REGIM
     Route: 042
     Dates: start: 20180228
  24. DARATUMUMAB [Suspect]
     Active Substance: DARATUMUMAB
     Indication: PLASMA CELL MYELOMA
     Dosage: 816 MILLIGRAM, PER CHEMO REGIM
     Route: 042
     Dates: start: 20180228
  25. OMEPRAZOLE. [Concomitant]
     Active Substance: OMEPRAZOLE
     Dosage: 40 MILLIGRAM
     Dates: start: 20180223
  26. HUMALOG [Concomitant]
     Active Substance: INSULIN LISPRO
     Dosage: UNK
  27. POLYETHYLENE GLYCOL [Concomitant]
     Active Substance: POLYETHYLENE GLYCOLS
     Indication: CONSTIPATION
     Dosage: 17 GRAM, QD AS NEEDED (PRN)
  28. ACETAMINOPHEN. [Concomitant]
     Active Substance: ACETAMINOPHEN
     Indication: PAIN
     Dosage: 650 MILLIGRAM, Q4H  AS NEEDED(PRN)
     Route: 048
     Dates: start: 20180228
  29. SINGULAIR [Concomitant]
     Active Substance: MONTELUKAST SODIUM
     Dosage: 10 MILLIGRAM
     Route: 048
     Dates: start: 20181010
  30. FUROSEMIDE. [Concomitant]
     Active Substance: FUROSEMIDE
     Indication: CARDIAC FAILURE
     Dosage: 20-40 MILLIGRAM, BID
     Dates: start: 20190826, end: 20191008
  31. IMDUR [Concomitant]
     Active Substance: ISOSORBIDE MONONITRATE
     Dosage: 60 MILLIGRAM, QD
     Dates: start: 20180321
  32. VITAMIN B12 [Concomitant]
     Active Substance: CYANOCOBALAMIN
     Dosage: 1000-5000 MICROGRAM DAILY
     Dates: start: 20180212
  33. SODIUM POLYSTYRENE SULFONATE. [Concomitant]
     Active Substance: SODIUM POLYSTYRENE SULFONATE
     Dosage: 5 GRAM
     Dates: start: 20190417
  34. LACTULOSE. [Concomitant]
     Active Substance: LACTULOSE
     Indication: CONSTIPATION
     Dosage: 2 UNK AS NEEDED (PRN)
     Dates: start: 20170724
  35. TYLENOL [Concomitant]
     Active Substance: ACETAMINOPHEN
     Dosage: 325-650 MILLIGRAM
     Route: 048
     Dates: start: 20180912
  36. DIPHENHYDRAMINE HCL [Concomitant]
     Active Substance: DIPHENHYDRAMINE HYDROCHLORIDE
     Dosage: 50 MILLIGRAM
     Dates: start: 20180228
  37. BENADRYL [Concomitant]
     Active Substance: DIPHENHYDRAMINE HYDROCHLORIDE
     Dosage: 50 MILLIGRAM
     Route: 042
     Dates: start: 20180912
  38. HYDROCHLOROTHIAZIDE. [Concomitant]
     Active Substance: HYDROCHLOROTHIAZIDE
     Dosage: 25 MILLIGRAM
     Dates: start: 20190703, end: 20190826
  39. PROCRIT [Concomitant]
     Active Substance: ERYTHROPOIETIN
     Dosage: 40000 INTERNATIONAL UNIT
     Dates: start: 20190717, end: 20191023
  40. SLOW-K [Concomitant]
     Active Substance: POTASSIUM CHLORIDE
     Indication: BLOOD POTASSIUM DECREASED
     Dosage: UNK

REACTIONS (2)
  - Atrial enlargement [Recovered/Resolved]
  - Oedema peripheral [Recovered/Resolved]

NARRATIVE: CASE EVENT DATE: 20191014
